FAERS Safety Report 5226141-7 (Version None)
Quarter: 2007Q1

REPORT INFORMATION
  Report Type: 
  Country: None (occurrence: None)
  Receive Date: 20070201
  Receipt Date: 20070124
  Transmission Date: 20070707
  Serious: Yes (Death, Hospitalization)
  Sender: FDA-Public Use
  Company Number: CH-GLAXOSMITHKLINE-B0456521A

PATIENT
  Age: 54 Year
  Sex: Female
  Weight: 85 kg

DRUGS (2)
  1. AVANDAMET [Suspect]
     Dosage: 1TAB PER DAY
     Route: 048
     Dates: start: 20060509, end: 20060601
  2. XENICAL [Concomitant]
     Route: 048

REACTIONS (21)
  - ABDOMINAL PAIN [None]
  - ABDOMINAL PAIN UPPER [None]
  - ASCITES [None]
  - ASTHENIA [None]
  - BREAST CANCER [None]
  - CARDIOPULMONARY FAILURE [None]
  - CHROMATURIA [None]
  - COAGULOPATHY [None]
  - CONSTIPATION [None]
  - DYSPNOEA [None]
  - HAEMATEMESIS [None]
  - HEPATIC CIRRHOSIS [None]
  - HEPATIC ENZYME INCREASED [None]
  - HEPATIC FAILURE [None]
  - ILL-DEFINED DISORDER [None]
  - JAUNDICE [None]
  - METASTASES TO LIVER [None]
  - NAUSEA [None]
  - OEDEMA PERIPHERAL [None]
  - OLIGURIA [None]
  - WEIGHT INCREASED [None]
